FAERS Safety Report 7922058-5 (Version None)
Quarter: 2011Q4

REPORT INFORMATION
  Report Type: 
  Country: None (occurrence: None)
  Receive Date: 20111117
  Receipt Date: 20111108
  Transmission Date: 20120403
  Serious: Yes (Hospitalization, Other)
  Sender: FDA-Public Use
  Company Number: US-ASTRAZENECA-2011SE65412

PATIENT
  Age: 63 Year
  Sex: Female
  Weight: 65.3 kg

DRUGS (6)
  1. SEROQUEL [Suspect]
     Indication: POST-TRAUMATIC STRESS DISORDER
     Dosage: 50 MG IN THE MORNING AND 100 MG IN THE NIGHT
     Route: 048
     Dates: start: 20110101
  2. VITAMIN B-12 [Concomitant]
  3. LORAZEPAM [Concomitant]
  4. DIGOXIN [Concomitant]
  5. VITAMIN D [Concomitant]
  6. ASCORBIC ACID [Concomitant]

REACTIONS (9)
  - NEPHROLITHIASIS [None]
  - ANXIETY [None]
  - TOOTH LOSS [None]
  - DRUG DOSE OMISSION [None]
  - PANIC ATTACK [None]
  - PROCEDURAL COMPLICATION [None]
  - PERIARTHRITIS [None]
  - POST-TRAUMATIC STRESS DISORDER [None]
  - TOOTH DISORDER [None]
